FAERS Safety Report 18055608 (Version 1)
Quarter: 2020Q3

REPORT INFORMATION
  Report Type: Spontaneous
  Country: DK (occurrence: DK)
  Receive Date: 20200722
  Receipt Date: 20200722
  Transmission Date: 20201103
  Serious: Yes (Hospitalization)
  Sender: FDA-Public Use
  Company Number: DK-BAYER-2020-141023

PATIENT
  Age: 40 Year
  Sex: Female

DRUGS (3)
  1. MIRENA [Suspect]
     Active Substance: LEVONORGESTREL
     Indication: CONTRACEPTION
     Dosage: 20 ?G PER DAY, CONTINUOUSLY
     Route: 015
     Dates: start: 201505, end: 2019
  2. FEXOFENADINE [Concomitant]
     Active Substance: FEXOFENADINE HYDROCHLORIDE
     Indication: URTICARIA
     Dosage: STYRKE: 180 MG.
     Route: 048
     Dates: start: 20150827, end: 20190912
  3. METEX [METHOTREXATE SODIUM] [Concomitant]
     Active Substance: METHOTREXATE SODIUM
     Indication: PSORIASIS
     Dosage: STYRKE: 15 MG.
     Route: 058
     Dates: start: 201601, end: 20181217

REACTIONS (10)
  - Diarrhoea [Recovered/Resolved]
  - Colitis [Unknown]
  - Gastrointestinal oedema [Unknown]
  - Abdominal pain [Recovered/Resolved]
  - Fatigue [Recovered/Resolved]
  - Gastroenteritis [Recovered/Resolved]
  - Rash macular [Recovered/Resolved]
  - Gastrointestinal tract irritation [Unknown]
  - Skin wound [Recovered/Resolved]
  - Pruritus [Recovered/Resolved]

NARRATIVE: CASE EVENT DATE: 201508
